FAERS Safety Report 23615696 (Version 1)
Quarter: 2024Q1

REPORT INFORMATION
  Report Type: Spontaneous
  Country: CN (occurrence: CN)
  Receive Date: 20240311
  Receipt Date: 20240311
  Transmission Date: 20240409
  Serious: Yes (Other)
  Sender: FDA-Public Use
  Company Number: CN-AstraZeneca-2024-151700

PATIENT

DRUGS (6)
  1. GOSERELIN [Suspect]
     Active Substance: GOSERELIN
     Indication: Neoplasm malignant
     Dosage: 3 MILLIGRAM, QD
     Route: 058
     Dates: start: 20231115, end: 20231115
  2. GOSERELIN [Suspect]
     Active Substance: GOSERELIN
     Dosage: 3 MILLIGRAM, QD
     Route: 058
     Dates: start: 20231213, end: 20231213
  3. GOSERELIN [Suspect]
     Active Substance: GOSERELIN
     Dosage: 3 MILLIGRAM, QD
     Route: 058
     Dates: start: 20240114, end: 20240114
  4. ZOLADEX [Suspect]
     Active Substance: GOSERELIN ACETATE
     Indication: Neoplasm malignant
     Dosage: UNK
     Route: 065
  5. LETROZOLE [Suspect]
     Active Substance: LETROZOLE
     Indication: Neoplasm malignant
     Dosage: 2 MILLIGRAM, QD
     Route: 048
     Dates: start: 20231213, end: 20231213
  6. LETROZOLE [Suspect]
     Active Substance: LETROZOLE
     Dosage: 2 MILLIGRAM, QD
     Route: 048
     Dates: start: 20240114, end: 20240114

REACTIONS (1)
  - Granulocyte count decreased [Recovering/Resolving]

NARRATIVE: CASE EVENT DATE: 20240114
